FAERS Safety Report 4354910-4 (Version None)
Quarter: 2004Q2

REPORT INFORMATION
  Report Type: 
  Country: None (occurrence: None)
  Receive Date: 20040507
  Receipt Date: 20030113
  Transmission Date: 20050107
  Serious: Yes (Hospitalization, Disabling)
  Sender: FDA-Public Use
  Company Number: US-MERCK-0301USA01087

PATIENT
  Age: 49 Year
  Sex: Male
  Weight: 85 kg

DRUGS (16)
  1. AMITRIPTYLINE HYDROCHLORIDE [Concomitant]
     Route: 065
  2. CELEXA [Concomitant]
     Route: 065
  3. NEXIUM [Concomitant]
     Indication: GASTROOESOPHAGEAL REFLUX DISEASE
     Route: 065
     Dates: start: 19980101
  4. LASIX [Concomitant]
     Indication: CARDIAC DISORDER
     Route: 065
     Dates: start: 20001101
  5. LASIX [Concomitant]
     Indication: HYPERTENSION
     Route: 065
     Dates: start: 20001101
  6. NEURONTIN [Concomitant]
     Route: 065
  7. ZAROXOLYN [Concomitant]
     Indication: HYPERTENSION
     Route: 065
     Dates: start: 19991201
  8. ALEVE [Concomitant]
     Route: 065
  9. OXYCONTIN [Concomitant]
     Route: 065
     Dates: start: 20001101, end: 20001101
  10. POTASSIUM CHLORIDE [Concomitant]
     Route: 065
  11. VIOXX [Suspect]
     Indication: BACK PAIN
     Route: 048
     Dates: start: 20001008, end: 20020420
  12. ZANAFLEX [Concomitant]
     Route: 065
  13. TORSEMIDE [Concomitant]
     Indication: HYPERTENSION
     Route: 065
     Dates: start: 19991201
  14. ULTRAM [Concomitant]
     Route: 065
  15. DIOVAN [Concomitant]
     Indication: HYPERTENSION
     Route: 065
     Dates: start: 19991101, end: 20030401
  16. AMBIEN [Concomitant]
     Route: 065

REACTIONS (44)
  - ABDOMINAL DISTENSION [None]
  - ANXIETY [None]
  - ATELECTASIS [None]
  - BACK PAIN [None]
  - BLOOD PH DECREASED [None]
  - BLOOD PRESSURE DECREASED [None]
  - BRONCHITIS [None]
  - BRONCHOPNEUMONIA [None]
  - CARDIAC FAILURE CONGESTIVE [None]
  - CARDIOMEGALY [None]
  - CEREBROVASCULAR ACCIDENT [None]
  - CHEST PAIN [None]
  - CHRONIC FATIGUE SYNDROME [None]
  - CLOSTRIDIUM COLITIS [None]
  - DIZZINESS [None]
  - FATIGUE [None]
  - FLUID RETENTION [None]
  - GASTROOESOPHAGEAL REFLUX DISEASE [None]
  - HAEMATOCHEZIA [None]
  - HEADACHE [None]
  - HYPERLIPIDAEMIA [None]
  - HYPOKALAEMIA [None]
  - HYPOXIA [None]
  - ILEUS [None]
  - LOBAR PNEUMONIA [None]
  - MITRAL VALVE INCOMPETENCE [None]
  - MITRAL VALVE PROLAPSE [None]
  - MYOCARDIAL INFARCTION [None]
  - NEPHROLITHIASIS [None]
  - PLEURAL EFFUSION [None]
  - PNEUMONIA [None]
  - PNEUMONIA ASPIRATION [None]
  - PNEUMONIA PNEUMOCOCCAL [None]
  - PULMONARY FIBROSIS [None]
  - PYREXIA [None]
  - RASH [None]
  - RENAL FAILURE ACUTE [None]
  - RESPIRATORY FAILURE [None]
  - RHABDOMYOLYSIS [None]
  - SCAR [None]
  - SINUS TACHYCARDIA [None]
  - SINUSITIS [None]
  - STAPHYLOCOCCAL INFECTION [None]
  - STREPTOCOCCAL INFECTION [None]
